FAERS Safety Report 5793564-7 (Version None)
Quarter: 2008Q2

REPORT INFORMATION
  Report Type: 
  Country: None (occurrence: None)
  Receive Date: 20080627
  Receipt Date: 20070504
  Transmission Date: 20081010
  Serious: No
  Sender: FDA-Public Use
  Company Number: A0650318A

PATIENT
  Sex: Male

DRUGS (3)
  1. VENTOLIN [Suspect]
     Indication: INHALATION THERAPY
     Route: 055
  2. SEREVENT [Suspect]
     Indication: INHALATION THERAPY
     Route: 055
  3. SERETIDE [Suspect]
     Indication: INHALATION THERAPY
     Route: 055

REACTIONS (6)
  - DYSARTHRIA [None]
  - FEELING JITTERY [None]
  - PALPITATIONS [None]
  - RESPIRATION ABNORMAL [None]
  - TREMOR [None]
  - VISUAL DISTURBANCE [None]
